FAERS Safety Report 7570759-3 (Version None)
Quarter: 2011Q2

REPORT INFORMATION
  Report Type: 
  Country: None (occurrence: None)
  Receive Date: 20110624
  Receipt Date: 20110615
  Transmission Date: 20111010
  Serious: Yes (Other)
  Sender: FDA-Public Use
  Company Number: ES-ELI_LILLY_AND_COMPANY-ES201106003599

PATIENT
  Sex: Male

DRUGS (4)
  1. VENTOLIN                                /SCH/ [Concomitant]
     Indication: BRONCHOSPASM
     Dosage: 100 UG, AS NEEDED
     Dates: start: 20110606
  2. ATROVENT [Concomitant]
     Indication: BRONCHOSPASM
     Dosage: 20 UG, IF NECESSARY
     Route: 055
     Dates: start: 20110606
  3. ALIMTA [Suspect]
     Indication: LUNG NEOPLASM MALIGNANT
     Dosage: UNK UNK, UNKNOWN
     Route: 065
     Dates: start: 20110606
  4. FLUMIL                             /00082801/ [Concomitant]
     Indication: PRODUCTIVE COUGH
     Dosage: 200 MG, EVERY 8 HRS
     Route: 048
     Dates: start: 20110606

REACTIONS (3)
  - DYSPHAGIA [None]
  - DYSPNOEA [None]
  - PRODUCTIVE COUGH [None]
